FAERS Safety Report 5286344-2 (Version None)
Quarter: 2007Q2

REPORT INFORMATION
  Report Type: 
  Country: None (occurrence: None)
  Receive Date: 20070404
  Receipt Date: 20070330
  Transmission Date: 20071010
  Serious: No
  Sender: FDA-Public Use
  Company Number: 2006UW07886

PATIENT
  Sex: Female
  Weight: 152.3 kg

DRUGS (3)
  1. SEROQUEL [Suspect]
     Indication: DEPRESSION
     Route: 048
  2. RISPERDAL [Concomitant]
  3. ZYPREXA [Concomitant]

REACTIONS (1)
  - DIABETES MELLITUS [None]
